FAERS Safety Report 17494587 (Version 1)
Quarter: 2020Q1

REPORT INFORMATION
  Report Type: Spontaneous
  Country: US (occurrence: US)
  Receive Date: 20200303
  Receipt Date: 20200303
  Transmission Date: 20200409
  Serious: No
  Sender: FDA-Public Use
  Company Number: US-AMNEAL PHARMACEUTICALS-2019-AMRX-02555

PATIENT
  Age: 60 Year
  Sex: Female
  Weight: 61 kg

DRUGS (9)
  1. INBRIJA [Suspect]
     Active Substance: LEVODOPA
     Dosage: UNK, AS NEEDED (ONCE OR TWICE A DAY)
     Route: 065
     Dates: start: 2019
  2. GINGER [ZINGIBER OFFICINALE RHIZOME] [Concomitant]
     Active Substance: GINGER
     Indication: PRODUCT USED FOR UNKNOWN INDICATION
     Dosage: UNK
     Route: 065
  3. CHOLINE [Concomitant]
     Active Substance: CHOLINE
     Indication: PRODUCT USED FOR UNKNOWN INDICATION
     Dosage: 500 MILLIGRAM, DAILY
     Route: 048
  4. ASPARTAME [Concomitant]
     Active Substance: ASPARTAME
     Indication: PRODUCT USED FOR UNKNOWN INDICATION
     Dosage: UNK
     Route: 065
  5. CARNITOR [Concomitant]
     Active Substance: LEVOCARNITINE
     Indication: PRODUCT USED FOR UNKNOWN INDICATION
     Dosage: UNK
     Route: 065
  6. INBRIJA [Suspect]
     Active Substance: LEVODOPA
     Indication: PARKINSON^S DISEASE
     Dosage: 84 MILLIGRAM, AS NEEDED (NOT TO EXCEED 5X A DAY)
     Dates: start: 2019, end: 2019
  7. B6 [Concomitant]
     Active Substance: PYRIDOXINE HYDROCHLORIDE
     Indication: PRODUCT USED FOR UNKNOWN INDICATION
     Dosage: UNK
     Route: 065
  8. RYTARY [Suspect]
     Active Substance: CARBIDOPA\LEVODOPA
     Indication: PARKINSON^S DISEASE
     Dosage: 2.45 GRAM, EVERY 4HR (6X/DAY)
     Route: 048
  9. TRYPTOPHAN [TRYPTOPHAN, L-] [Concomitant]
     Active Substance: TRYPTOPHAN
     Indication: PRODUCT USED FOR UNKNOWN INDICATION
     Route: 065

REACTIONS (13)
  - Dyskinesia [Recovered/Resolved]
  - Nausea [Unknown]
  - Prescribed overdose [Unknown]
  - Sputum discoloured [Unknown]
  - Lip dry [Recovered/Resolved]
  - Cough [Unknown]
  - Insomnia [Unknown]
  - Gastrointestinal disorder [Not Recovered/Not Resolved]
  - Dysphagia [Recovered/Resolved]
  - Throat irritation [Unknown]
  - Oropharyngeal discomfort [Unknown]
  - Tachypnoea [Recovered/Resolved]
  - Weight decreased [Not Recovered/Not Resolved]

NARRATIVE: CASE EVENT DATE: 201910
